FAERS Safety Report 7400444-X (Version None)
Quarter: 2011Q1

REPORT INFORMATION
  Report Type: 
  Country: None (occurrence: None)
  Receive Date: 20110330
  Receipt Date: 20110316
  Transmission Date: 20110831
  Serious: Yes (Hospitalization, Other)
  Sender: FDA-Public Use
  Company Number: 2010AL002944

PATIENT
  Age: 59 Year
  Sex: Female

DRUGS (53)
  1. DITROPAN [Concomitant]
  2. HYDROCHLOROTHIAZIDE [Concomitant]
  3. LOTENSIN [Concomitant]
  4. KEPPRA [Concomitant]
  5. IBUPROFEN [Concomitant]
  6. VIOXX [Concomitant]
  7. LORTAB [Concomitant]
  8. AUGMETIN [Concomitant]
  9. PROPOXYPHENE HYDROCHLORIDE [Concomitant]
  10. FOSAMAX [Concomitant]
  11. LEVOTHYROXINE SODIUM [Concomitant]
  12. DIAZEPAM [Concomitant]
  13. SKELAXIN [Concomitant]
  14. DETROL [Concomitant]
  15. AMOXICILLIN [Concomitant]
  16. SINEMET [Concomitant]
  17. TRAZODONE [Concomitant]
  18. LIDOCAINE [Concomitant]
  19. METOCLOPRAMIDE [Suspect]
     Indication: ERUCTATION
     Dosage: 10 MG'PO
     Route: 048
     Dates: start: 19990101, end: 20080801
  20. TETRABENAZINE [Concomitant]
  21. DANTROLENE SODIUM [Concomitant]
  22. MERIDIA [Concomitant]
  23. MEBBENDAZOLE [Concomitant]
  24. CLONAZEPAM [Concomitant]
  25. LUNESTA [Concomitant]
  26. PREMARIN [Concomitant]
  27. PHENTERMINE [Concomitant]
  28. BIAXIN [Concomitant]
  29. ORLISTAT [Concomitant]
  30. ALLEGRA [Concomitant]
  31. INDOMETHACIN [Concomitant]
  32. METHOCARBAMOL [Concomitant]
  33. CATAPRES [Concomitant]
  34. TOLTERODINE [Concomitant]
  35. POTASSIUM CHLORIDE [Concomitant]
  36. ADDERALL 10 [Concomitant]
  37. CIPROFLOXACIN [Concomitant]
  38. BACLOFEN [Concomitant]
  39. TROSPIUM CHLORIDE [Concomitant]
  40. LEVAQUIN [Concomitant]
  41. FENOFIBRATE [Concomitant]
  42. ATIVAN [Concomitant]
  43. CATAPRES [Concomitant]
  44. PROMETHAZINE [Concomitant]
  45. MEDROL [Concomitant]
  46. DOMPERIDONE [Concomitant]
  47. PREVACID [Concomitant]
  48. OMEPRAZOLE [Concomitant]
  49. ARMODAFINIL [Concomitant]
  50. HYDROCORTISONE [Concomitant]
  51. ZYRTEC [Concomitant]
  52. AVELOX [Concomitant]
  53. AMLODIPINE [Concomitant]

REACTIONS (48)
  - DYSTONIA [None]
  - FATIGUE [None]
  - GASTROOESOPHAGEAL REFLUX DISEASE [None]
  - INSOMNIA [None]
  - ECONOMIC PROBLEM [None]
  - HYPERTHYROIDISM [None]
  - ANXIETY [None]
  - LOSS OF CONSCIOUSNESS [None]
  - GINGIVAL BLEEDING [None]
  - RECTAL HAEMORRHAGE [None]
  - PARAESTHESIA [None]
  - DYSPHAGIA [None]
  - INCORRECT DRUG ADMINISTRATION DURATION [None]
  - NARCOLEPSY [None]
  - HAEMORRHOIDS [None]
  - DYSKINESIA [None]
  - OSTEOPOROSIS [None]
  - HYPERTONIC BLADDER [None]
  - ATTENTION DEFICIT/HYPERACTIVITY DISORDER [None]
  - MUSCLE SPASMS [None]
  - MUSCLE TIGHTNESS [None]
  - BRUXISM [None]
  - HYPERTRIGLYCERIDAEMIA [None]
  - MUSCLE TWITCHING [None]
  - ROAD TRAFFIC ACCIDENT [None]
  - TRANSIENT ISCHAEMIC ATTACK [None]
  - BACK PAIN [None]
  - CONSTIPATION [None]
  - ARTHRALGIA [None]
  - BRONCHITIS [None]
  - EXTRAPYRAMIDAL DISORDER [None]
  - BLOOD CHOLESTEROL INCREASED [None]
  - ASTHENIA [None]
  - HYPOTHYROIDISM [None]
  - CARPAL TUNNEL SYNDROME [None]
  - TARDIVE DYSKINESIA [None]
  - OBESITY [None]
  - DIPLOPIA [None]
  - SLEEP APNOEA SYNDROME [None]
  - CHEST DISCOMFORT [None]
  - HYPOAESTHESIA [None]
  - HYPERLIPIDAEMIA [None]
  - TREMOR [None]
  - EMOTIONAL DISORDER [None]
  - MAMMOPLASTY [None]
  - HYPERTENSION [None]
  - INCONTINENCE [None]
  - DYSPNOEA [None]
